FAERS Safety Report 7703260-4 (Version None)
Quarter: 2011Q3

REPORT INFORMATION
  Report Type: 
  Country: None (occurrence: None)
  Receive Date: 20110823
  Receipt Date: 20110816
  Transmission Date: 20111222
  Serious: Yes (Death)
  Sender: FDA-Public Use
  Company Number: MX-SANOFI-AVENTIS-2011SA052525

PATIENT
  Sex: Female
  Weight: 38 kg

DRUGS (3)
  1. ARAVA [Suspect]
     Indication: RHEUMATOID ARTHRITIS
     Route: 048
     Dates: start: 20040101, end: 20110214
  2. LAMOTRIGINE [Concomitant]
     Route: 048
     Dates: end: 20110214
  3. CARBAMAZEPINE [Concomitant]
     Route: 048
     Dates: end: 20110214

REACTIONS (7)
  - ODYNOPHAGIA [None]
  - LARYNGEAL OEDEMA [None]
  - RESPIRATORY FAILURE [None]
  - LUDWIG ANGINA [None]
  - DYSPNOEA [None]
  - PHARYNGEAL ULCERATION [None]
  - LUNG INFECTION [None]
